FAERS Safety Report 21309156 (Version 1)
Quarter: 2022Q3

REPORT INFORMATION
  Report Type: Report from Study
  Country: US (occurrence: US)
  Receive Date: 20220908
  Receipt Date: 20220908
  Transmission Date: 20221027
  Serious: Yes (Hospitalization, Other)
  Sender: FDA-Public Use
  Company Number: US-BRISTOL-MYERS SQUIBB COMPANY-2022-099297

PATIENT
  Age: 71 Year
  Sex: Male
  Weight: 80.74 kg

DRUGS (1)
  1. POMALYST [Suspect]
     Active Substance: POMALIDOMIDE
     Indication: Plasma cell myeloma
     Dosage: FOR 21 DAYS 7 DAYS OFF
     Route: 048
     Dates: start: 20211029

REACTIONS (7)
  - Salmonellosis [Unknown]
  - Clostridium difficile colitis [Unknown]
  - Syncope [Unknown]
  - Escherichia infection [Unknown]
  - Hypotension [Unknown]
  - Dehydration [Unknown]
  - Neuropathy peripheral [Unknown]

NARRATIVE: CASE EVENT DATE: 20220201
